FAERS Safety Report 22065169 (Version 1)
Quarter: 2023Q1

REPORT INFORMATION
  Report Type: Spontaneous
  Country: CN (occurrence: CN)
  Receive Date: 20230306
  Receipt Date: 20230306
  Transmission Date: 20230418
  Serious: Yes (Other)
  Sender: FDA-Public Use
  Company Number: CN-PFIZER INC-202300083928

PATIENT
  Age: 36 Year
  Sex: Male

DRUGS (1)
  1. SULFASALAZINE [Suspect]
     Active Substance: SULFASALAZINE
     Indication: SAPHO syndrome
     Dosage: 1 G, 1X/DAY

REACTIONS (5)
  - Takayasu^s arteritis [Unknown]
  - Carotid artery disease [Unknown]
  - Off label use [Unknown]
  - Neck pain [Unknown]
  - Angiopathy [Unknown]
